FAERS Safety Report 8485022-6 (Version None)
Quarter: 2012Q2

REPORT INFORMATION
  Report Type: 
  Country: None (occurrence: None)
  Receive Date: 20120625
  Receipt Date: 20120614
  Transmission Date: 20120825
  Serious: Yes (Other)
  Sender: FDA-Public Use
  Company Number: 2012-00919

PATIENT
  Age: 51 Year
  Sex: Male
  Weight: 120.2032 kg

DRUGS (5)
  1. MELOXICAM [Suspect]
     Indication: ARTHRITIS
     Dosage: 15 MG (15 MG, 1 IN 1 D), PER ORAL 15 MG (15 MG, 1 IN 1 D), PER ORAL
     Route: 048
     Dates: start: 20120501, end: 20120501
  2. MELOXICAM [Suspect]
     Indication: ARTHRITIS
     Dosage: 15 MG (15 MG, 1 IN 1 D), PER ORAL 15 MG (15 MG, 1 IN 1 D), PER ORAL
     Route: 048
     Dates: start: 20070601, end: 20070701
  3. SAXAGLIPTIN (ONGLYZA) (UNKNOWN) [Concomitant]
  4. OXYCODONE + ACETAMINOPHEN (ENDOCET) (UNKNOWN) [Concomitant]
  5. ROSUVASTATIN (CRESTOR) (UNKNOWN) [Concomitant]

REACTIONS (2)
  - DRUG INEFFECTIVE [None]
  - DIARRHOEA HAEMORRHAGIC [None]
